FAERS Safety Report 22733781 (Version 4)
Quarter: 2024Q2

REPORT INFORMATION
  Report Type: Spontaneous
  Country: BE (occurrence: BE)
  Receive Date: 20230721
  Receipt Date: 20240402
  Transmission Date: 20240715
  Serious: Yes (Other)
  Sender: FDA-Public Use
  Company Number: BE-SAMSUNG BIOEPIS-SB-2023-18255

PATIENT
  Age: 73 Year
  Sex: Male

DRUGS (17)
  1. REMICADE [Suspect]
     Active Substance: INFLIXIMAB
     Indication: Immune-mediated enterocolitis
     Dosage: 10 MG/KG BODY WEIGHT; UNKNOWN (HIGH-DOSE);MULTIPLE HIGH-DOSE
     Route: 042
  2. METHOTREXATE [Suspect]
     Active Substance: METHOTREXATE
     Indication: Immune-mediated enterocolitis
     Route: 065
  3. MYCOPHENOLATE MOFETIL [Suspect]
     Active Substance: MYCOPHENOLATE MOFETIL
     Indication: Enterocolitis
     Dosage: UNK
     Route: 065
  4. MYCOPHENOLATE MOFETIL [Suspect]
     Active Substance: MYCOPHENOLATE MOFETIL
     Indication: Immune-mediated enterocolitis
  5. VEDOLIZUMAB [Suspect]
     Active Substance: VEDOLIZUMAB
     Indication: Immune-mediated enterocolitis
     Dosage: UNK
     Route: 065
  6. PEMBROLIZUMAB [Suspect]
     Active Substance: PEMBROLIZUMAB
     Indication: Bladder transitional cell carcinoma stage IV
     Dosage: 200 MILLIGRAM, 3XW
     Route: 065
  7. GANCICLOVIR [Suspect]
     Active Substance: GANCICLOVIR
     Indication: Cytomegalovirus viraemia
     Dosage: 5 MILLIGRAM/KILOGRAM, BID
     Route: 065
  8. AZITHROMYCIN [Suspect]
     Active Substance: AZITHROMYCIN
     Indication: Campylobacter infection
     Route: 065
  9. AZITHROMYCIN [Suspect]
     Active Substance: AZITHROMYCIN
     Indication: Immune-mediated enterocolitis
  10. GANCICLOVIR [Concomitant]
     Active Substance: GANCICLOVIR
     Indication: Cytomegalovirus colitis
     Dosage: 5 MG/KG, Q12H
     Route: 065
  11. GANCICLOVIR [Concomitant]
     Active Substance: GANCICLOVIR
     Indication: Campylobacter colitis
  12. AZITHROMYCIN [Concomitant]
     Active Substance: AZITHROMYCIN
     Indication: Campylobacter colitis
     Dosage: 500 MILLIGRAM, QD
     Route: 065
  13. AZITHROMYCIN [Concomitant]
     Active Substance: AZITHROMYCIN
     Indication: Cytomegalovirus colitis
  14. MYCOPHENOLATE MOFETIL [Concomitant]
     Active Substance: MYCOPHENOLATE MOFETIL
     Indication: Enterocolitis
     Dosage: UNK
     Route: 065
  15. VEDOLIZUMAB [Concomitant]
     Active Substance: VEDOLIZUMAB
     Indication: Enterocolitis
     Dosage: UNK
     Route: 065
  16. METHOTREXATE [Concomitant]
     Active Substance: METHOTREXATE
     Indication: Immune-mediated lung disease
     Dosage: 1 MILLIGRAM/KILOGRAM
     Route: 065
  17. ENFORTUMAB VEDOTIN [Concomitant]
     Active Substance: ENFORTUMAB VEDOTIN
     Indication: Transitional cell carcinoma
     Dosage: 1.25 MILLIGRAM/KILOGRAM
     Route: 065

REACTIONS (13)
  - Device related infection [Unknown]
  - Cachexia [Unknown]
  - Sepsis [Recovered/Resolved]
  - Sepsis [Recovered/Resolved]
  - Device related infection [Recovered/Resolved]
  - Bacterial translocation [Recovered/Resolved]
  - Intestinal stenosis [Recovered/Resolved]
  - Drug ineffective for unapproved indication [Unknown]
  - Drug ineffective [Unknown]
  - Off label use [Unknown]
  - Drug ineffective for unapproved indication [Unknown]
  - Campylobacter infection [Recovered/Resolved]
  - Immune-mediated lung disease [Recovered/Resolved]
